FAERS Safety Report 16662114 (Version 1)
Quarter: 2019Q3

REPORT INFORMATION
  Report Type: Spontaneous
  Country: US (occurrence: US)
  Receive Date: 20190730
  Receipt Date: 20190730
  Transmission Date: 20191004
  Serious: No
  Sender: FDA-Public Use
  Company Number: None

PATIENT
  Sex: Male

DRUGS (1)
  1. UMI NO SHIZUKU FUCOIDAN [Suspect]
     Active Substance: DIETARY SUPPLEMENT\HERBALS
     Indication: POSTOPERATIVE CARE

REACTIONS (2)
  - Insomnia [None]
  - Restlessness [None]

NARRATIVE: CASE EVENT DATE: 20190512
